FAERS Safety Report 8225715-9 (Version None)
Quarter: 2012Q1

REPORT INFORMATION
  Report Type: 
  Country: None (occurrence: None)
  Receive Date: 20120321
  Receipt Date: 20120315
  Transmission Date: 20120608
  Serious: Yes (Hospitalization)
  Sender: FDA-Public Use
  Company Number: DE-JNJFOC-20120300541

PATIENT
  Sex: Female

DRUGS (2)
  1. MINOXIDIL [Suspect]
     Route: 061
  2. MINOXIDIL [Suspect]
     Indication: PRODUCT USED FOR UNKNOWN INDICATION
     Route: 061
     Dates: start: 20120201, end: 20120201

REACTIONS (7)
  - PALPITATIONS [None]
  - DIZZINESS [None]
  - MALAISE [None]
  - CHILLS [None]
  - NAUSEA [None]
  - VESTIBULAR DISORDER [None]
  - HYPERTENSION [None]
